FAERS Safety Report 12182459 (Version 1)
Quarter: 2016Q1

REPORT INFORMATION
  Report Type: Spontaneous
  Country: US (occurrence: US)
  Receive Date: 20160316
  Receipt Date: 20160316
  Transmission Date: 20160526
  Serious: Yes (Hospitalization)
  Sender: FDA-Public Use
  Company Number: US-BEH-2016059907

PATIENT
  Age: 53 Year
  Sex: Female
  Weight: 109 kg

DRUGS (43)
  1. CYMBALTA [Concomitant]
     Active Substance: DULOXETINE HYDROCHLORIDE
  2. BACLOFEN. [Concomitant]
     Active Substance: BACLOFEN
  3. BECLOMETHASONE DIPRO [Concomitant]
  4. FISH OIL OMEGA 3 [Concomitant]
  5. FOLIC ACID. [Concomitant]
     Active Substance: FOLIC ACID
  6. DIPHENHYDRAMINE. [Concomitant]
     Active Substance: DIPHENHYDRAMINE
  7. KEPPRA [Concomitant]
     Active Substance: LEVETIRACETAM
  8. XYLOCAINE [Concomitant]
     Active Substance: LIDOCAINE HYDROCHLORIDE
  9. PRIVIGEN [Suspect]
     Active Substance: HUMAN IMMUNOGLOBULIN G
     Indication: BEHCET^S SYNDROME
     Dosage: 20 GM VIALS
     Route: 042
  10. PREDNISONE. [Concomitant]
     Active Substance: PREDNISONE
  11. AMBIEN [Concomitant]
     Active Substance: ZOLPIDEM TARTRATE
  12. THALOMID [Concomitant]
     Active Substance: THALIDOMIDE
  13. ALBUTEROL. [Concomitant]
     Active Substance: ALBUTEROL
  14. FERROUS SULFATE [Concomitant]
     Active Substance: FERROUS SULFATE\FERROUS SULFATE, DRIED
  15. LMX [Concomitant]
     Active Substance: LIDOCAINE
  16. FLONASE [Concomitant]
     Active Substance: FLUTICASONE PROPIONATE
  17. PRILOSEC [Concomitant]
     Active Substance: OMEPRAZOLE MAGNESIUM
  18. FLOMAX [Concomitant]
     Active Substance: TAMSULOSIN HYDROCHLORIDE
  19. HYDROCODONE BITARTRATE AND ACETAMINOPHEN [Concomitant]
     Active Substance: ACETAMINOPHEN\HYDROCODONE BITARTRATE
  20. TEMOVATE [Concomitant]
     Active Substance: CLOBETASOL PROPIONATE
  21. NORMAL SALINE [Concomitant]
     Active Substance: SODIUM CHLORIDE
  22. LEVOTHYROXINE. [Concomitant]
     Active Substance: LEVOTHYROXINE
  23. QVAR [Concomitant]
     Active Substance: BECLOMETHASONE DIPROPIONATE
  24. SENNA [Concomitant]
     Active Substance: SENNA LEAF\SENNOSIDES\SENNOSIDES A AND B
  25. CALCIUM +D [Concomitant]
     Active Substance: CALCIUM\VITAMIN D
  26. NORTRIPTYLINE [Concomitant]
     Active Substance: NORTRIPTYLINE
  27. PRIVIGEN [Suspect]
     Active Substance: HUMAN IMMUNOGLOBULIN G
     Indication: BEHCET^S SYNDROME
     Dosage: 20 GM VIALS
     Route: 042
  28. CENTRUM MULTIVITAMIN [Concomitant]
  29. ZOFRAN [Concomitant]
     Active Substance: ONDANSETRON HYDROCHLORIDE
  30. MIRALAX [Concomitant]
     Active Substance: POLYETHYLENE GLYCOL 3350
  31. DANTRIUM [Concomitant]
     Active Substance: DANTROLENE SODIUM
  32. LIDOCAINE HCL [Concomitant]
     Active Substance: LIDOCAINE HYDROCHLORIDE
  33. ENBREL [Concomitant]
     Active Substance: ETANERCEPT
  34. ACETAMINOPHEN. [Concomitant]
     Active Substance: ACETAMINOPHEN
  35. EPIPEN [Concomitant]
     Active Substance: EPINEPHRINE
  36. EFFEXOR XR [Concomitant]
     Active Substance: VENLAFAXINE HYDROCHLORIDE
  37. SAVELLA [Concomitant]
     Active Substance: MILNACIPRAN HYDROCHLORIDE
  38. ASPIRIN. [Concomitant]
     Active Substance: ASPIRIN
  39. SODIUM CHLORIDE. [Concomitant]
     Active Substance: SODIUM CHLORIDE
  40. PRAVACHOL [Concomitant]
     Active Substance: PRAVASTATIN SODIUM
  41. SINGULAIR [Concomitant]
     Active Substance: MONTELUKAST SODIUM
  42. VALIUM [Concomitant]
     Active Substance: DIAZEPAM
  43. KLONOPIN [Concomitant]
     Active Substance: CLONAZEPAM

REACTIONS (1)
  - Pneumonia [Recovered/Resolved]

NARRATIVE: CASE EVENT DATE: 20160302
